FAERS Safety Report 24864385 (Version 2)
Quarter: 2025Q2

REPORT INFORMATION
  Report Type: Report from Study
  Country: US (occurrence: US)
  Receive Date: 20250120
  Receipt Date: 20250415
  Transmission Date: 20250716
  Serious: Yes (Hospitalization, Other)
  Sender: ABBVIE
  Company Number: US-ABBVIE-6089730

PATIENT
  Age: 64 Year
  Sex: Female

DRUGS (2)
  1. RINVOQ [Suspect]
     Active Substance: UPADACITINIB
     Indication: Rheumatoid arthritis
     Route: 048
     Dates: start: 20241011
  2. RINVOQ [Suspect]
     Active Substance: UPADACITINIB
     Indication: Rheumatoid arthritis
     Route: 048
     Dates: start: 20250114

REACTIONS (11)
  - Illness [Unknown]
  - Retinal detachment [Unknown]
  - Upper respiratory tract infection [Unknown]
  - Respiratory syncytial virus infection [Not Recovered/Not Resolved]
  - Contusion [Unknown]
  - Headache [Unknown]
  - Chest pain [Unknown]
  - Blood cholesterol increased [Unknown]
  - Abdominal pain [Not Recovered/Not Resolved]
  - Eye disorder [Unknown]
  - Nausea [Unknown]

NARRATIVE: CASE EVENT DATE: 20250101
